FAERS Safety Report 8918716 (Version 2)
Quarter: 2019Q1

REPORT INFORMATION
  Report Type: Spontaneous
  Country: US (occurrence: US)
  Receive Date: 20121120
  Receipt Date: 20190319
  Transmission Date: 20190418
  Serious: Yes (Other)
  Sender: FDA-Public Use
  Company Number: US-ASTRAZENECA-2012SE20175

PATIENT
  Sex: Male
  Weight: 99.8 kg

DRUGS (5)
  1. ZANTAC [Concomitant]
     Active Substance: RANITIDINE HYDROCHLORIDE
  2. NEXIUM [Suspect]
     Active Substance: ESOMEPRAZOLE MAGNESIUM
     Route: 048
  3. CARAFATE [Concomitant]
     Active Substance: SUCRALFATE
  4. BYDUREON BCISE [Suspect]
     Active Substance: EXENATIDE
     Indication: TYPE 2 DIABETES MELLITUS
     Route: 058
  5. PEPCID [Concomitant]
     Active Substance: FAMOTIDINE

REACTIONS (7)
  - Haematemesis [Unknown]
  - Product dose omission [Recovered/Resolved]
  - Wrong technique in product usage process [Unknown]
  - Device malfunction [Unknown]
  - Nausea [Unknown]
  - Injection site pain [Unknown]
  - Oesophageal disorder [Unknown]
